FAERS Safety Report 4486077-6 (Version None)
Quarter: 2004Q4

REPORT INFORMATION
  Report Type: 
  Country: None (occurrence: None)
  Receive Date: 20041021
  Receipt Date: 20041007
  Transmission Date: 20050328
  Serious: Yes (Hospitalization)
  Sender: FDA-Public Use
  Company Number: EM2004-0467

PATIENT
  Age: 40 Year
  Sex: Male
  Weight: 62 kg

DRUGS (25)
  1. MACROLIN [Suspect]
     Indication: HIV INFECTION
     Dosage: 4.5 MIU, BID
     Dates: start: 20040805, end: 20040810
  2. RETROVIR [Concomitant]
  3. VIDEX [Concomitant]
  4. EPIVIR [Concomitant]
  5. COMBIVIR [Concomitant]
  6. NORVIR [Concomitant]
  7. INVIRASE [Concomitant]
  8. ZERIT [Concomitant]
  9. VIRACEPT [Concomitant]
  10. SUSTIVA [Concomitant]
  11. ZIAGEN [Concomitant]
  12. AGENERASE [Concomitant]
  13. VIRAMUINE (NEVIRAPINE) [Concomitant]
  14. KALETRA [Concomitant]
  15. VIREAD [Concomitant]
  16. CRIXIVAN [Concomitant]
  17. TIPRANAVIR (TIPRANAVIR) [Concomitant]
  18. BACTRIUM (TRIMETHOPRIM, SULFAMETHOXAZOLE) [Concomitant]
  19. LEXOMIL (BROMAZEPAM) [Concomitant]
  20. FENOFIBRARTE (FENOFIBRATE) [Concomitant]
  21. IMODIUM [Concomitant]
  22. SOLUTIONS FOR PARENTERAL NUTRITION [Concomitant]
  23. VALACYCLOVIR HCL [Concomitant]
  24. AZADOSE (AZITHROMYCIN) [Concomitant]
  25. FUSEON [Concomitant]

REACTIONS (3)
  - DIARRHOEA [None]
  - GASTROENTERITIS CRYPTOSPORIDIAL [None]
  - WEIGHT DECREASED [None]
